FAERS Safety Report 6092992-2 (Version None)
Quarter: 2009Q1

REPORT INFORMATION
  Report Type: 
  Country: None (occurrence: None)
  Receive Date: 20090224
  Receipt Date: 20090210
  Transmission Date: 20090719
  Serious: Yes (Hospitalization)
  Sender: FDA-Public Use
  Company Number: 2006SP001254

PATIENT
  Age: 81 Year
  Sex: Female
  Weight: 49.9 kg

DRUGS (4)
  1. XOPENEX [Suspect]
     Indication: CHRONIC OBSTRUCTIVE PULMONARY DISEASE
     Dosage: .63 MG/3ML; INHALATION; 1.25 MG/3ML; BID; INHALATION
     Route: 055
     Dates: start: 19990101, end: 19990101
  2. XOPENEX [Suspect]
     Indication: CHRONIC OBSTRUCTIVE PULMONARY DISEASE
     Dosage: .63 MG/3ML; INHALATION; 1.25 MG/3ML; BID; INHALATION
     Route: 055
     Dates: start: 19990101
  3. CON MEDS = NONE [Concomitant]
  4. PREV MEDS =UNKNOWN [Concomitant]

REACTIONS (4)
  - CHOLECYSTECTOMY [None]
  - NAUSEA [None]
  - POSTNASAL DRIP [None]
  - SKIN DISCOLOURATION [None]
